FAERS Safety Report 8445905 (Version 4)
Quarter: 2014Q2

REPORT INFORMATION
  Report Type: Spontaneous
  Country: US (occurrence: US)
  Receive Date: 20120307
  Receipt Date: 20140513
  Transmission Date: 20141212
  Serious: Yes (Other)
  Sender: FDA-Public Use
  Company Number: US-ASTRAZENECA-2005UW17789

PATIENT
  Age: 56 Year
  Sex: Female

DRUGS (5)
  1. ZOMIG [Suspect]
     Indication: MIGRAINE
     Route: 048
  2. ZOMIG [Suspect]
     Indication: MIGRAINE
     Route: 048
  3. ZOMIG [Suspect]
     Indication: MIGRAINE
     Route: 048
     Dates: start: 200908
  4. ZOMIG [Suspect]
     Indication: MIGRAINE
     Route: 048
     Dates: start: 200908
  5. IMITREX [Concomitant]

REACTIONS (7)
  - Cerebrovascular accident [Unknown]
  - Brain injury [Unknown]
  - Migraine [Unknown]
  - Headache [Unknown]
  - Dizziness [Unknown]
  - Drug ineffective [Unknown]
  - Drug dose omission [Unknown]
